FAERS Safety Report 6270601-7 (Version None)
Quarter: 2009Q3

REPORT INFORMATION
  Report Type: 
  Country: None (occurrence: None)
  Receive Date: 20090716
  Receipt Date: 20090707
  Transmission Date: 20100115
  Serious: Yes (Congenital Anomaly)
  Sender: FDA-Public Use
  Company Number: GB-ASTRAZENECA-2009SE04132

PATIENT

DRUGS (2)
  1. QUETIAPINE [Suspect]
     Dosage: EXPOSED DURING FIRST TRIMESTER
     Route: 063
  2. QUETIAPINE [Suspect]
     Dosage: EXPOSED DURING FIRST TRIMESTER
     Route: 064

REACTIONS (3)
  - DRUG EXPOSURE VIA BREAST MILK [None]
  - FAILURE TO THRIVE [None]
  - SOMNOLENCE [None]
